FAERS Safety Report 20168986 (Version 6)
Quarter: 2022Q1

REPORT INFORMATION
  Report Type: Report from Study
  Country: US (occurrence: US)
  Receive Date: 20211210
  Receipt Date: 20220209
  Transmission Date: 20220423
  Serious: Yes (Hospitalization, Other)
  Sender: FDA-Public Use
  Company Number: US-BIOGEN-2021BI01062143

PATIENT
  Sex: Female

DRUGS (2)
  1. TYSABRI [Suspect]
     Active Substance: NATALIZUMAB
     Indication: Multiple sclerosis
     Route: 065
     Dates: start: 20210114, end: 20210408
  2. TYSABRI [Suspect]
     Active Substance: NATALIZUMAB
     Route: 065
     Dates: end: 20210505

REACTIONS (6)
  - Seizure [Not Recovered/Not Resolved]
  - Irritable bowel syndrome [Recovered/Resolved]
  - Malaise [Not Recovered/Not Resolved]
  - Amnesia [Not Recovered/Not Resolved]
  - Gastrooesophageal reflux disease [Unknown]
  - Anxiety [Not Recovered/Not Resolved]

NARRATIVE: CASE EVENT DATE: 20210101
